FAERS Safety Report 17036755 (Version 1)
Quarter: 2019Q4

REPORT INFORMATION
  Report Type: Spontaneous
  Country: US (occurrence: US)
  Receive Date: 20191015
  Receipt Date: 20191015
  Transmission Date: 20200122
  Serious: Yes (Hospitalization)
  Sender: FDA-Public Use
  Company Number: None

PATIENT
  Age: 57 Year
  Sex: Female
  Weight: 121.11 kg

DRUGS (1)
  1. WARFARIN [Suspect]
     Active Substance: WARFARIN
     Indication: ATRIAL FIBRILLATION
     Dosage: MG PM PO
     Route: 048
     Dates: start: 20150831, end: 20190818

REACTIONS (3)
  - Metastases to abdominal cavity [None]
  - International normalised ratio abnormal [None]
  - Gastric haemorrhage [None]

NARRATIVE: CASE EVENT DATE: 20190818
